FAERS Safety Report 21584376 (Version 1)
Quarter: 2022Q4

REPORT INFORMATION
  Report Type: Report from Study
  Country: US (occurrence: US)
  Receive Date: 20221111
  Receipt Date: 20221111
  Transmission Date: 20230113
  Serious: No
  Sender: FDA-Public Use
  Company Number: US-ABBVIE-4196759

PATIENT
  Sex: Female

DRUGS (1)
  1. IMBRUVICA [Suspect]
     Active Substance: IBRUTINIB
     Indication: Waldenstrom^s macroglobulinaemia
     Route: 048

REACTIONS (6)
  - Skin exfoliation [Unknown]
  - Adverse drug reaction [Unknown]
  - Onychoclasis [Unknown]
  - Nail disorder [Unknown]
  - Skin fissures [Unknown]
  - Nausea [Recovered/Resolved]
